FAERS Safety Report 11120862 (Version 2)
Quarter: 2015Q2

REPORT INFORMATION
  Report Type: Spontaneous
  Country: US (occurrence: US)
  Receive Date: 20150519
  Receipt Date: 20150610
  Transmission Date: 20150821
  Serious: No
  Sender: FDA-Public Use
  Company Number: US-009507513-1505USA001404

PATIENT
  Age: 24 Year
  Sex: Female

DRUGS (1)
  1. NEXPLANON [Suspect]
     Active Substance: ETONOGESTREL
     Indication: CONTRACEPTION
     Dosage: 1 DF (1 ROD), LEFT ARM
     Route: 059
     Dates: start: 20141107, end: 20150402

REACTIONS (2)
  - Implant site vesicles [Recovering/Resolving]
  - Implant site vesicles [Recovered/Resolved]

NARRATIVE: CASE EVENT DATE: 2015
